FAERS Safety Report 6679630 (Version 12)
Quarter: 2012Q4

REPORT INFORMATION
  Report Type: 
  Country: US (occurrence: US)
  Receive Date: 20080624
  Receipt Date: 20121226
  Transmission Date: 20130627
  Serious: Yes (Hospitalization, Congenital Anomaly, Other)
  Sender: FDA-Public Use
  Company Number: US-PFIZER INC-2008049858

PATIENT
  Sex: Male
  Weight: 4 kg

DRUGS (18)
  1. ZOLOFT [Suspect]
     Indication: DEPRESSION
     Dosage: 150mg daily, UNK
     Route: 064
     Dates: start: 200301, end: 200508
  2. PRENATAL VITAMINS [Concomitant]
     Dosage: UNK
     Route: 064
  3. RISPERDAL [Concomitant]
     Dosage: UNK
     Route: 064
  4. DEPAKOTE [Concomitant]
     Dosage: UNK
     Route: 064
  5. ADVIL [Concomitant]
     Dosage: UNK
     Route: 064
  6. TUMS [Concomitant]
     Dosage: UNK
     Route: 064
  7. PEPTO-BISMOL [Concomitant]
     Dosage: UNK
     Route: 064
  8. WELLBUTRIN [Concomitant]
     Dosage: UNK
     Route: 064
  9. KLONOPIN [Concomitant]
     Dosage: UNK
     Route: 064
  10. EFFEXOR [Concomitant]
     Dosage: UNK
     Route: 064
  11. NAPROXEN [Concomitant]
     Dosage: UNK
     Route: 064
  12. CLONAZEPAM [Concomitant]
     Dosage: UNK
     Route: 064
  13. PROCHLORPERAZINE [Concomitant]
     Dosage: UNK
     Route: 064
  14. BENZONATATE [Concomitant]
     Dosage: UNK
     Route: 064
  15. PROMETHAZINE [Concomitant]
     Dosage: UNK
     Route: 064
  16. FLUOXETINE [Concomitant]
     Dosage: UNK
     Route: 064
  17. CIPROFLOXACIN [Concomitant]
     Dosage: UNK
     Route: 064
  18. LITHIUM CARBONATE [Concomitant]
     Dosage: UNK
     Route: 064

REACTIONS (10)
  - Foetal exposure during pregnancy [Unknown]
  - Neonatal respiratory distress syndrome [Unknown]
  - Fallot^s tetralogy [Unknown]
  - Pneumothorax [Unknown]
  - Staphylococcal bacteraemia [Unknown]
  - Wound infection [Unknown]
  - Atrial septal defect [Unknown]
  - Congenital anomaly [Unknown]
  - Elliptocytosis hereditary [Unknown]
  - Wound dehiscence [Unknown]
